FAERS Safety Report 24641724 (Version 1)
Quarter: 2024Q4

REPORT INFORMATION
  Report Type: Report from Study
  Country: PK (occurrence: PK)
  Receive Date: 20241120
  Receipt Date: 20241120
  Transmission Date: 20250115
  Serious: Yes (Death)
  Sender: ROCHE
  Company Number: PK-ROCHE-10000136284

PATIENT
  Age: 56 Year
  Sex: Male

DRUGS (2)
  1. AVASTIN [Suspect]
     Active Substance: BEVACIZUMAB
     Indication: Colorectal cancer metastatic
     Dosage: FORMULATION: SOLUTION
     Route: 042
     Dates: start: 20240720, end: 20241013
  2. AVASTIN [Suspect]
     Active Substance: BEVACIZUMAB
     Dosage: FORMULATION: SOLUTION
     Route: 042
     Dates: start: 20240720, end: 20241013

REACTIONS (1)
  - Ill-defined disorder [Fatal]

NARRATIVE: CASE EVENT DATE: 20241112
